FAERS Safety Report 18521721 (Version 1)
Quarter: 2020Q4

REPORT INFORMATION
  Report Type: Report from Study
  Country: FR (occurrence: FR)
  Receive Date: 20201119
  Receipt Date: 20201119
  Transmission Date: 20210114
  Serious: Yes (Death)
  Sender: FDA-Public Use
  Company Number: FR-PFIZER INC-2020456949

PATIENT

DRUGS (6)
  1. CODEINE [Suspect]
     Active Substance: CODEINE
     Dosage: UNK
  2. BISOPROLOL [Suspect]
     Active Substance: BISOPROLOL
     Dosage: UNK
  3. 9-TETRAHYDROCANNABINOL [Suspect]
     Active Substance: DRONABINOL
     Dosage: UNK
  4. AMLODIPINE BESILATE [Suspect]
     Active Substance: AMLODIPINE BESYLATE
     Dosage: UNK
  5. MORPHINE [Suspect]
     Active Substance: MORPHINE
     Dosage: UNK
  6. VALPROIC ACID. [Suspect]
     Active Substance: VALPROIC ACID
     Dosage: UNK

REACTIONS (1)
  - Toxicity to various agents [Fatal]
